FAERS Safety Report 5949717-8 (Version None)
Quarter: 2008Q4

REPORT INFORMATION
  Report Type: 
  Country: None (occurrence: None)
  Receive Date: 20081112
  Receipt Date: 20081031
  Transmission Date: 20090506
  Serious: Yes (Other)
  Sender: FDA-Public Use
  Company Number: CA-JNJFOC-20080107290

PATIENT
  Sex: Female
  Weight: 52.2 kg

DRUGS (13)
  1. REMICADE [Suspect]
     Dosage: INFUSIONS 58-64
     Route: 042
  2. REMICADE [Suspect]
     Dosage: 57TH INFUSION; INTERVAL: EVERY 4-6 WEEKS
     Route: 042
  3. REMICADE [Suspect]
     Dosage: INFUSIONS 36-56 (20-SEP-2005 TO 06-DEC-2007) AT 300 MG
     Route: 042
  4. REMICADE [Suspect]
     Dosage: INFUSIONS 4-35 (15-JAN-2002 TO 09-AUG-2005) WITH UNSPECIFIED DOSES
     Route: 042
  5. REMICADE [Suspect]
     Route: 042
  6. REMICADE [Suspect]
     Route: 042
  7. REMICADE [Suspect]
     Indication: RHEUMATOID ARTHRITIS
     Route: 042
  8. CELEBREX [Concomitant]
  9. ACTONEL [Concomitant]
  10. CALCIUM [Concomitant]
  11. METHOTREXATE [Concomitant]
     Route: 050
  12. FOLIC ACID [Concomitant]
  13. VITAMIN D [Concomitant]

REACTIONS (1)
  - ACTINIC KERATOSIS [None]
